FAERS Safety Report 7409141-8 (Version None)
Quarter: 2011Q2

REPORT INFORMATION
  Report Type: 
  Country: None (occurrence: None)
  Receive Date: 20110412
  Receipt Date: 20110401
  Transmission Date: 20111010
  Serious: Yes (Hospitalization)
  Sender: FDA-Public Use
  Company Number: US-ROCHE-769045

PATIENT
  Sex: Male

DRUGS (11)
  1. CAPECITABINE [Suspect]
     Dosage: LAST DOSE PRIOR TO SAE: 14 MARCH 2011  FREQUENCY: 14 DAYS ON AND 7 DAYS OFF
     Route: 065
     Dates: start: 20101201
  2. AMBIEN [Concomitant]
  3. COLACE [Concomitant]
  4. BEVACIZUMAB [Suspect]
     Route: 042
     Dates: start: 20101216, end: 20110314
  5. VITAMIN B-12 [Concomitant]
  6. ATIVAN [Concomitant]
  7. CARBOPLATIN [Suspect]
     Dosage: LAST DOSE PRIOR TO SAE: 14 MARCH 2011
     Route: 065
     Dates: start: 20101201
  8. NORCO [Concomitant]
  9. CELEXA [Concomitant]
  10. MYCOSTATIN [Concomitant]
  11. SENNA [Concomitant]

REACTIONS (3)
  - ABDOMINAL PAIN [None]
  - DISEASE PROGRESSION [None]
  - BACK PAIN [None]
